FAERS Safety Report 9284168 (Version 1)
Quarter: 2013Q2

REPORT INFORMATION
  Report Type: Spontaneous
  Country: US (occurrence: US)
  Receive Date: 20130510
  Receipt Date: 20130510
  Transmission Date: 20140414
  Serious: Yes (Other)
  Sender: FDA-Public Use
  Company Number: CHPA2013US007918

PATIENT
  Age: 69 Year
  Sex: Male

DRUGS (5)
  1. EXCEDRIN PM [Suspect]
     Indication: HEADACHE
     Dosage: 1 TO 2, UNK
     Route: 048
     Dates: end: 201211
  2. EXCEDRIN PM [Suspect]
     Indication: INSOMNIA
  3. EXCEDRIN EXTRA STRENGTH [Suspect]
     Dosage: UNK, UNK
     Route: 048
     Dates: end: 2003
  4. PREDNISONE [Concomitant]
     Dosage: UNK
     Dates: start: 201304
  5. OMEPRAZOLE [Concomitant]
     Dosage: UNK
     Dates: start: 201304

REACTIONS (1)
  - Atrial fibrillation [Not Recovered/Not Resolved]
